FAERS Safety Report 8415392-6 (Version None)
Quarter: 2012Q2

REPORT INFORMATION
  Report Type: 
  Country: None (occurrence: None)
  Receive Date: 20120606
  Receipt Date: 20120601
  Transmission Date: 20120825
  Serious: Yes (Other)
  Sender: FDA-Public Use
  Company Number: PHEH2012US011197

PATIENT
  Sex: Male

DRUGS (9)
  1. STALEVO 100 [Suspect]
     Dosage: 150 MG, TID
  2. POTASSIUM CHLORIDE [Concomitant]
     Dosage: 10 MG, DAILY
  3. PRAVASTATIN [Concomitant]
     Dosage: 20 MG, DAILY
  4. VENLAFAXINE [Concomitant]
     Dosage: 37.5 MG, BID
  5. CLONAZEPAM [Concomitant]
     Dosage: 0.5 MG, TID
  6. BENAZEPRIL HYDROCHLORIDE [Concomitant]
     Dosage: 10 MG, BID
  7. AMANTADINE HCL [Concomitant]
     Dosage: 100 MG, QD
  8. ATENOLOL [Concomitant]
     Dosage: 50 MG, DAILY
  9. FUROSEMIDE [Concomitant]
     Dosage: 40 MG, DAILY

REACTIONS (2)
  - ARTHROPATHY [None]
  - NEPHROLITHIASIS [None]
